FAERS Safety Report 18260359 (Version 1)
Quarter: 2020Q3

REPORT INFORMATION
  Report Type: Spontaneous
  Country: US (occurrence: US)
  Receive Date: 20200914
  Receipt Date: 20200914
  Transmission Date: 20201103
  Serious: Yes (Other)
  Sender: FDA-Public Use
  Company Number: US-LEADINGPHARMA-US-2020LEALIT00138

PATIENT
  Age: 21 Year
  Sex: Female

DRUGS (5)
  1. PROPOFOL. [Interacting]
     Active Substance: PROPOFOL
     Indication: ENDOTRACHEAL INTUBATION
     Dosage: 50 MCG/KG/MIN
     Route: 065
  2. LORAZEPAM TABLETS USP [Suspect]
     Active Substance: LORAZEPAM
     Indication: CONFUSIONAL STATE
     Route: 042
  3. LORAZEPAM TABLETS USP [Suspect]
     Active Substance: LORAZEPAM
     Route: 042
  4. PHENOBARBITAL. [Interacting]
     Active Substance: PHENOBARBITAL
     Indication: SEDATION
     Route: 065
  5. PROPOFOL. [Interacting]
     Active Substance: PROPOFOL
     Indication: SEDATION

REACTIONS (2)
  - Condition aggravated [Recovering/Resolving]
  - Drug ineffective [Unknown]
